FAERS Safety Report 7022116-6 (Version None)
Quarter: 2010Q3

REPORT INFORMATION
  Report Type: 
  Country: None (occurrence: None)
  Receive Date: 20100930
  Receipt Date: 20100921
  Transmission Date: 20110219
  Serious: Yes (Hospitalization)
  Sender: FDA-Public Use
  Company Number: US-WYE-H17617010

PATIENT
  Age: 69 Year
  Sex: Male

DRUGS (2)
  1. TEMSIROLIMUS [Suspect]
     Indication: THYROID CANCER METASTATIC
     Dosage: NOT PROVIDED
     Route: 042
     Dates: start: 20100528, end: 20100921
  2. SORAFENIB [Suspect]
     Indication: THYROID CANCER
     Dosage: NOT PROVIDED
     Route: 048
     Dates: start: 20100528, end: 20100921

REACTIONS (4)
  - ANAEMIA [None]
  - DEHYDRATION [None]
  - DEVICE RELATED INFECTION [None]
  - VOMITING [None]
